FAERS Safety Report 7020654-3 (Version None)
Quarter: 2010Q3

REPORT INFORMATION
  Report Type: 
  Country: None (occurrence: None)
  Receive Date: 20100929
  Receipt Date: 20100629
  Transmission Date: 20110219
  Serious: Yes (Other)
  Sender: FDA-Public Use
  Company Number: B0676765A

PATIENT
  Age: 36 Year
  Sex: Female

DRUGS (3)
  1. DIGOXIN [Suspect]
     Indication: EJECTION FRACTION DECREASED
     Dosage: 250UG PER DAY
  2. EPIRUBICIN [Suspect]
     Indication: BREAST CANCER
  3. HERCEPTIN [Suspect]
     Indication: BREAST CANCER

REACTIONS (2)
  - EJECTION FRACTION DECREASED [None]
  - SINUS TACHYCARDIA [None]
